FAERS Safety Report 14899766 (Version 3)
Quarter: 2018Q2

REPORT INFORMATION
  Report Type: Report from Study
  Country: US (occurrence: US)
  Receive Date: 20180516
  Receipt Date: 20180627
  Transmission Date: 20180711
  Serious: Yes (Other)
  Sender: FDA-Public Use
  Company Number: US-AMGEN-USASL2018065205

PATIENT
  Age: 75 Year
  Sex: Female

DRUGS (1)
  1. ENBREL [Suspect]
     Active Substance: ETANERCEPT
     Indication: RHEUMATOID ARTHRITIS
     Dosage: 50 MG, QWK
     Route: 065

REACTIONS (7)
  - Cardiac operation [Unknown]
  - Drug hypersensitivity [Unknown]
  - Tooth disorder [Unknown]
  - Swollen tongue [Unknown]
  - Skin exfoliation [Unknown]
  - Mouth swelling [Unknown]
  - Joint arthroplasty [Unknown]
